FAERS Safety Report 4663881-2 (Version None)
Quarter: 2005Q2

REPORT INFORMATION
  Report Type: 
  Country: None (occurrence: None)
  Receive Date: 20050511
  Receipt Date: 20050203
  Transmission Date: 20051028
  Serious: Yes (Hospitalization)
  Sender: FDA-Public Use
  Company Number: 371732

PATIENT
  Sex: Female

DRUGS (2)
  1. PEGASYS [Suspect]
     Indication: HEPATITIS C VIRUS
     Dosage: 180 MCG 1 PER WEEK SUBCUTANEOUS
     Route: 058
     Dates: start: 20040315, end: 20050130
  2. COPEGUS [Suspect]
     Indication: HEPATITIS C VIRUS
     Dosage: 6 DOSE FORM DAILY 2 PER DAY ORAL
     Route: 048
     Dates: start: 20040315, end: 20050130

REACTIONS (16)
  - ALOPECIA [None]
  - DEPRESSION [None]
  - DIARRHOEA [None]
  - FAECES DISCOLOURED [None]
  - FEELING ABNORMAL [None]
  - HEADACHE [None]
  - INSOMNIA [None]
  - LOSS OF CONTROL OF LEGS [None]
  - NEUTROPENIA [None]
  - OESOPHAGITIS [None]
  - PHARYNGOLARYNGEAL PAIN [None]
  - PYREXIA [None]
  - STEATORRHOEA [None]
  - SUICIDE ATTEMPT [None]
  - VOMITING [None]
  - WEIGHT INCREASED [None]
